FAERS Safety Report 10707300 (Version 1)
Quarter: 2015Q1

REPORT INFORMATION
  Report Type: Spontaneous
  Country: US (occurrence: US)
  Receive Date: 20150113
  Receipt Date: 20150113
  Transmission Date: 20150721
  Serious: No
  Sender: FDA-Public Use
  Company Number: US-009507513-1501USA003790

PATIENT
  Age: 22 Year
  Sex: Female
  Weight: 68.27 kg

DRUGS (2)
  1. METHADONE HYDROCHLORIDE. [Concomitant]
     Active Substance: METHADONE HYDROCHLORIDE
     Dosage: 100MG
  2. NEXPLANON [Suspect]
     Active Substance: ETONOGESTREL
     Indication: CONTRACEPTION
     Dosage: 1 ROD FOR 3 YEARS; UPPER LEFT ARM
     Route: 059
     Dates: start: 20140826

REACTIONS (2)
  - Amenorrhoea [Unknown]
  - Weight increased [Unknown]

NARRATIVE: CASE EVENT DATE: 20140829
